FAERS Safety Report 8434286-3 (Version None)
Quarter: 2012Q2

REPORT INFORMATION
  Report Type: 
  Country: None (occurrence: None)
  Receive Date: 20120613
  Receipt Date: 20120605
  Transmission Date: 20120825
  Serious: Yes (Death, Other)
  Sender: FDA-Public Use
  Company Number: IT-ROXANE LABORATORIES, INC.-2012-RO-01364RO

PATIENT
  Age: 55 Year
  Sex: Female

DRUGS (13)
  1. AMPHOTERICIN B [Suspect]
     Indication: ANTIFUNGAL PROPHYLAXIS
  2. CASPOFUNGIN ACETATE [Suspect]
     Indication: ZYGOMYCOSIS
  3. AMPHOTERICIN B [Suspect]
     Indication: ZYGOMYCOSIS
  4. ANTI-THYMOCYTE GLOBULIN NOS [Suspect]
     Indication: PROPHYLAXIS AGAINST GRAFT VERSUS HOST DISEASE
  5. LEVOFLOXACIN [Suspect]
     Indication: ANTIBIOTIC PROPHYLAXIS
  6. VORICONAZOLE [Suspect]
     Indication: ANTIFUNGAL PROPHYLAXIS
  7. CYCLOSPORINE [Suspect]
     Indication: PROPHYLAXIS AGAINST GRAFT VERSUS HOST DISEASE
  8. DEFARASIROX [Suspect]
     Indication: ZYGOMYCOSIS
  9. FLUCONAZOLE [Suspect]
     Indication: ANTIFUNGAL PROPHYLAXIS
  10. BUSULFAN [Suspect]
     Indication: STEM CELL TRANSPLANT
  11. METHOTREXATE [Suspect]
     Indication: PROPHYLAXIS AGAINST GRAFT VERSUS HOST DISEASE
  12. CYCLOPHOSPHAMIDE [Suspect]
     Indication: STEM CELL TRANSPLANT
  13. PIPERACILLIN/TAZOBACTAM [Suspect]
     Indication: FEBRILE NEUTROPENIA

REACTIONS (6)
  - FEBRILE NEUTROPENIA [None]
  - THROMBOCYTOPENIA [None]
  - ZYGOMYCOSIS [None]
  - PLEURAL EFFUSION [None]
  - LIVER INJURY [None]
  - PNEUMOTHORAX [None]
